FAERS Safety Report 14490398 (Version 1)
Quarter: 2018Q1

REPORT INFORMATION
  Report Type: Report from Study
  Country: FR (occurrence: FR)
  Receive Date: 20180206
  Receipt Date: 20180206
  Transmission Date: 20180509
  Serious: Yes (Other)
  Sender: FDA-Public Use
  Company Number: FR-ACCORD-063187

PATIENT
  Age: 64 Year
  Sex: Female

DRUGS (2)
  1. PREDNISONE. [Suspect]
     Active Substance: PREDNISONE
     Indication: SARCOIDOSIS
  2. MYCOPHENOLIC ACID. [Suspect]
     Active Substance: MYCOPHENOLIC ACID
     Indication: SARCOIDOSIS

REACTIONS (3)
  - Escherichia sepsis [Recovering/Resolving]
  - Pelvic inflammatory disease [Recovering/Resolving]
  - Off label use [Unknown]
